FAERS Safety Report 5461126-7 (Version None)
Quarter: 2007Q3

REPORT INFORMATION
  Report Type: 
  Country: None (occurrence: None)
  Receive Date: 20070920
  Receipt Date: 20070913
  Transmission Date: 20080115
  Serious: Yes (Other)
  Sender: FDA-Public Use
  Company Number: PHBS2007JP12058

PATIENT
  Age: 69 Year
  Sex: Female
  Weight: 49 kg

DRUGS (2)
  1. NORVASC [Concomitant]
     Indication: HYPERTENSION
     Dosage: 5 MG, UNK
     Route: 048
     Dates: start: 20030707
  2. DIOVAN [Suspect]
     Indication: HYPERTENSION
     Dosage: 80 MG, QD
     Route: 048
     Dates: start: 20010619, end: 20070711

REACTIONS (3)
  - BLOOD CREATININE DECREASED [None]
  - CHEST X-RAY ABNORMAL [None]
  - INTERSTITIAL LUNG DISEASE [None]
